FAERS Safety Report 4394162-2 (Version None)
Quarter: 2004Q3

REPORT INFORMATION
  Report Type: 
  Country: None (occurrence: None)
  Receive Date: 20040706
  Receipt Date: 20040622
  Transmission Date: 20050211
  Serious: Yes (Death)
  Sender: FDA-Public Use
  Company Number: 04H-163-0264844-00

PATIENT

DRUGS (3)
  1. LEUCOVORIN CALCIUM [Suspect]
     Indication: CHEMOTHERAPY
     Dosage: 200 MG/M2, FOR 2 DAYS EVERY 14 DAYS, INTRAVENOUS
     Route: 042
  2. FLUOROURACIL [Suspect]
     Indication: CHEMOTHERAPY
     Dosage: 400 MG/M2, THEN 600 MG/M2, FOR 2 DAYS EVERY 14 DAYS, INTRAVENOUS
     Route: 042
  3. OXALIPLATIN [Suspect]
     Indication: CHEMOTHERAPY
     Dosage: 85 MG/M2, ON DAY ONE, EVERY 14 DAYS, INTRAVENOUS
     Route: 042

REACTIONS (2)
  - INFECTION [None]
  - SEPSIS [None]
